FAERS Safety Report 5825784-7 (Version None)
Quarter: 2008Q3

REPORT INFORMATION
  Report Type: 
  Country: None (occurrence: None)
  Receive Date: 20080723
  Receipt Date: 20080714
  Transmission Date: 20090109
  Serious: Yes (Hospitalization)
  Sender: FDA-Public Use
  Company Number: 2008AL008213

PATIENT
  Age: 50 Year
  Sex: Male

DRUGS (6)
  1. PHENYTOIN [Suspect]
     Dosage: 300 MG; QD;
  2. OMEPRAZOLE [Concomitant]
  3. INSULIN [Concomitant]
  4. VITAMIN B COMPLEX [Concomitant]
  5. ATORVASTATIN [Concomitant]
  6. SPIRONOLACTONE [Concomitant]

REACTIONS (14)
  - ANAEMIA MACROCYTIC [None]
  - ANTICONVULSANT DRUG LEVEL BELOW THERAPEUTIC [None]
  - BALANCE DISORDER [None]
  - BLOOD ALBUMIN DECREASED [None]
  - BLOOD BILIRUBIN INCREASED [None]
  - CEREBELLAR SYNDROME [None]
  - DYSARTHRIA [None]
  - GAMMA-GLUTAMYLTRANSFERASE INCREASED [None]
  - HEPATIC FUNCTION ABNORMAL [None]
  - INTERNATIONAL NORMALISED RATIO INCREASED [None]
  - MICROANGIOPATHY [None]
  - NYSTAGMUS [None]
  - PROTHROMBIN TIME PROLONGED [None]
  - THROMBOCYTHAEMIA [None]
